FAERS Safety Report 7737056-4 (Version None)
Quarter: 2011Q3

REPORT INFORMATION
  Report Type: 
  Country: None (occurrence: None)
  Receive Date: 20110908
  Receipt Date: 20110825
  Transmission Date: 20111222
  Serious: Yes (Death)
  Sender: FDA-Public Use
  Company Number: US-CELGENEUS-163-21880-11063094

PATIENT
  Sex: Male
  Weight: 84.898 kg

DRUGS (17)
  1. REVLIMID [Suspect]
     Indication: CYTOGENETIC ABNORMALITY
  2. AMBIEN [Concomitant]
     Dosage: 5 MILLIGRAM
     Route: 065
  3. DESFERAL [Concomitant]
     Route: 065
  4. REVLIMID [Suspect]
     Dosage: 10 MILLIGRAM
     Route: 048
     Dates: start: 20110509, end: 20110620
  5. PLATELETS [Concomitant]
     Indication: TRANSFUSION
     Route: 041
  6. LASIX [Concomitant]
     Dosage: 20 MILLIGRAM
     Route: 065
  7. MULTIPLE VITAMINS [Concomitant]
     Route: 065
  8. ACYCLOVIR [Concomitant]
     Dosage: 800 MILLIGRAM
     Route: 065
  9. CELEXA [Concomitant]
     Dosage: 10 MILLIGRAM
     Route: 065
  10. TOPROL-XL [Concomitant]
     Route: 065
  11. VASOTEC [Concomitant]
     Dosage: 5 MILLIGRAM
     Route: 065
  12. ZYLOPRIM [Concomitant]
     Dosage: 100 MILLIGRAM
     Route: 065
  13. LEVOTHYROXINE SODIUM [Concomitant]
     Dosage: 150 MICROGRAM
     Route: 065
  14. NEULASTA [Concomitant]
     Route: 065
  15. RED CELL BLOOD [Concomitant]
     Route: 041
  16. VIDAZA [Suspect]
     Route: 065
  17. ZOCOR [Concomitant]
     Dosage: 40 MILLIGRAM
     Route: 065

REACTIONS (2)
  - PANCYTOPENIA [None]
  - MYELODYSPLASTIC SYNDROME [None]
